FAERS Safety Report 7375341-9 (Version None)
Quarter: 2011Q1

REPORT INFORMATION
  Report Type: 
  Country: None (occurrence: None)
  Receive Date: 20110325
  Receipt Date: 20110321
  Transmission Date: 20110831
  Serious: Yes (Hospitalization, Congenital Anomaly, Other)
  Sender: FDA-Public Use
  Company Number: US-PFIZER INC-2010092577

PATIENT
  Sex: Female
  Weight: 5 kg

DRUGS (10)
  1. ZOLOFT [Suspect]
     Indication: AFFECTIVE DISORDER
     Dosage: UNK
     Route: 064
  2. METFORMIN [Concomitant]
     Indication: GESTATIONAL DIABETES
     Dosage: 500 MG, 3X/DAY
     Route: 064
  3. UNISOM [Concomitant]
     Dosage: UNK
     Route: 064
  4. BUSPAR [Concomitant]
     Dosage: UNK
     Route: 064
  5. METFORMIN [Concomitant]
     Indication: ABORTION SPONTANEOUS
  6. ALBUTEROL [Concomitant]
     Dosage: UNK
     Route: 064
  7. ZYPREXA [Concomitant]
     Dosage: UNK
     Route: 064
  8. VITAMIN B6 [Concomitant]
     Dosage: UNK
     Route: 064
  9. TRILEPTAL [Concomitant]
     Indication: DEPRESSION
     Dosage: UNK
     Route: 064
  10. DOXYCYCLINE [Concomitant]
     Indication: MYCOPLASMA INFECTION
     Dosage: 100 MG, 2X/DAY FOR 1 WEEK
     Route: 064

REACTIONS (2)
  - COARCTATION OF THE AORTA [None]
  - DRUG EXPOSURE DURING PREGNANCY [None]
